FAERS Safety Report 4390907-6 (Version None)
Quarter: 2004Q3

REPORT INFORMATION
  Report Type: 
  Country: None (occurrence: None)
  Receive Date: 20040707
  Receipt Date: 20040628
  Transmission Date: 20050211
  Serious: Yes (Hospitalization)
  Sender: FDA-Public Use
  Company Number: 200412509FR

PATIENT
  Age: 45 Year
  Sex: Male

DRUGS (1)
  1. BIRODOGYL [Suspect]
     Indication: EPULIS
     Route: 048

REACTIONS (1)
  - PANCREATITIS ACUTE [None]
